FAERS Safety Report 5770685-6 (Version None)
Quarter: 2008Q2

REPORT INFORMATION
  Report Type: 
  Country: None (occurrence: None)
  Receive Date: 20080613
  Receipt Date: 20080512
  Transmission Date: 20081010
  Serious: No
  Sender: FDA-Public Use
  Company Number: US-ABBOTT-08P-163-0451332-00

PATIENT
  Sex: Female

DRUGS (4)
  1. HUMIRA [Suspect]
     Indication: CROHN'S DISEASE
     Route: 058
     Dates: start: 20080404, end: 20080404
  2. HUMIRA [Suspect]
     Route: 058
     Dates: start: 20080418, end: 20080418
  3. HUMIRA [Suspect]
     Route: 058
     Dates: start: 20080502
  4. LANSOPRAZOLE [Concomitant]
     Indication: DRUG USE FOR UNKNOWN INDICATION
     Route: 048

REACTIONS (2)
  - BRONCHITIS VIRAL [None]
  - DYSPNOEA [None]
